FAERS Safety Report 4952001-2 (Version None)
Quarter: 2006Q1

REPORT INFORMATION
  Report Type: 
  Country: None (occurrence: None)
  Receive Date: 20060320
  Receipt Date: 20060309
  Transmission Date: 20060701
  Serious: Yes (Hospitalization)
  Sender: FDA-Public Use
  Company Number: 2006034007

PATIENT
  Age: 55 Year
  Sex: Female

DRUGS (3)
  1. XANAX [Suspect]
     Indication: ILL-DEFINED DISORDER
     Dosage: (10 DROP , 1 D) , ORAL
     Route: 048
     Dates: start: 20060227, end: 20060227
  2. MOXIFLOXACIN HCL [Suspect]
     Indication: ILL-DEFINED DISORDER
     Dosage: 400 MG, 1 D ,ORAL
     Route: 048
     Dates: start: 20060227, end: 20060227
  3. OMEPRAZOLE [Suspect]
     Indication: ILL-DEFINED DISORDER
     Dosage: (20 MG, 1 D), ORAL
     Route: 048
     Dates: start: 20060227, end: 20060227

REACTIONS (1)
  - ANAPHYLACTIC SHOCK [None]
